FAERS Safety Report 11678877 (Version 1)
Quarter: 2015Q4

REPORT INFORMATION
  Report Type: Spontaneous
  Country: IT (occurrence: IT)
  Receive Date: 20151028
  Receipt Date: 20151028
  Transmission Date: 20160304
  Serious: Yes (Hospitalization)
  Sender: FDA-Public Use
  Company Number: IT-CONCORDIA PHARMACEUTICALS INC.-CO-UX-IT-2015-041

PATIENT
  Age: 79 Year
  Sex: Male

DRUGS (3)
  1. FORPROST [Concomitant]
     Dates: start: 20150919, end: 20150919
  2. ALLOPURINOL. [Concomitant]
     Active Substance: ALLOPURINOL
  3. ALFUZOSIN HYDROCHLORIDE. [Suspect]
     Active Substance: ALFUZOSIN HYDROCHLORIDE
     Indication: BENIGN PROSTATIC HYPERPLASIA
     Route: 048
     Dates: start: 20150919, end: 20150919

REACTIONS (3)
  - Depressed level of consciousness [Recovered/Resolved]
  - Presyncope [Recovered/Resolved]
  - Hyperhidrosis [Recovered/Resolved]

NARRATIVE: CASE EVENT DATE: 20150919
